FAERS Safety Report 5213615-8 (Version None)
Quarter: 2007Q1

REPORT INFORMATION
  Report Type: 
  Country: None (occurrence: None)
  Receive Date: 20070119
  Receipt Date: 20070116
  Transmission Date: 20070707
  Serious: Yes (Death)
  Sender: FDA-Public Use
  Company Number: VE-ABBOTT-06P-178-0351816-00

PATIENT
  Sex: Male
  Weight: 51 kg

DRUGS (5)
  1. ZEMPLAR [Suspect]
     Indication: HYPERPARATHYROIDISM SECONDARY
     Route: 042
     Dates: start: 20051109, end: 20061117
  2. DIGOXIN [Concomitant]
     Indication: HYPERTROPHIC CARDIOMYOPATHY
     Route: 048
  3. BECOSYM FORTE [Concomitant]
     Indication: VITAMIN SUPPLEMENTATION
     Route: 042
  4. FOLIC ACID [Concomitant]
     Indication: VITAMIN SUPPLEMENTATION
     Route: 048
  5. CALCIUM CARBONATE [Concomitant]
     Indication: BLOOD PHOSPHORUS
     Route: 048
     Dates: start: 20051101, end: 20061101

REACTIONS (1)
  - CARDIAC FAILURE [None]
